FAERS Safety Report 4723558-1 (Version None)
Quarter: 2005Q3

REPORT INFORMATION
  Report Type: 
  Country: None (occurrence: None)
  Receive Date: 20050719
  Receipt Date: 20050711
  Transmission Date: 20060218
  Serious: Yes (Hospitalization)
  Sender: FDA-Public Use
  Company Number: THYM-10616

PATIENT
  Age: 65 Year
  Sex: Male
  Weight: 86 kg

DRUGS (3)
  1. THYMOGLOBULIN [Suspect]
     Indication: RENAL TRANSPLANT
     Dosage: 100 MG QD IV
     Route: 042
     Dates: start: 20050616, end: 20050621
  2. PROGRAF [Concomitant]
  3. MYCOPHENOLATE MEFETIL [Concomitant]

REACTIONS (2)
  - CONSTIPATION [None]
  - LARGE INTESTINE PERFORATION [None]
